FAERS Safety Report 17895309 (Version 1)
Quarter: 2020Q2

REPORT INFORMATION
  Report Type: Report from Study
  Country: CA (occurrence: CA)
  Receive Date: 20200615
  Receipt Date: 20200615
  Transmission Date: 20200714
  Serious: Yes (Hospitalization)
  Sender: FDA-Public Use
  Company Number: CA-UCBSA-2020005713

PATIENT
  Age: 65 Year
  Sex: Female

DRUGS (2)
  1. CERTOLIZUMAB PEGOL ASP [Suspect]
     Active Substance: CERTOLIZUMAB PEGOL
     Indication: ANKYLOSING SPONDYLITIS
     Dosage: 400 MILLIGRAM, EV 2 WEEKS(QOW)
     Route: 058
     Dates: start: 20200131, end: 20200229
  2. CERTOLIZUMAB PEGOL ASP [Suspect]
     Active Substance: CERTOLIZUMAB PEGOL
     Dosage: 400 MILLIGRAM, EV 4 WEEKS
     Route: 058
     Dates: start: 2020

REACTIONS (9)
  - Malaise [Not Recovered/Not Resolved]
  - Mobility decreased [Recovering/Resolving]
  - Rhinorrhoea [Recovering/Resolving]
  - Bedridden [Not Recovered/Not Resolved]
  - Hyperthyroidism [Not Recovered/Not Resolved]
  - Intentional dose omission [Unknown]
  - Pyrexia [Recovering/Resolving]
  - Coronavirus test negative [Unknown]
  - Intentional product misuse [Unknown]

NARRATIVE: CASE EVENT DATE: 20200131
